FAERS Safety Report 5683810-2 (Version None)
Quarter: 2008Q1

REPORT INFORMATION
  Report Type: 
  Country: None (occurrence: None)
  Receive Date: 20080328
  Receipt Date: 20080317
  Transmission Date: 20080703
  Serious: Yes (Hospitalization, Other)
  Sender: FDA-Public Use
  Company Number: US-JNJFOC-20080304643

PATIENT
  Sex: Male

DRUGS (5)
  1. DURAGESIC-100 [Suspect]
     Dosage: ONE 25UG AND ONE 75UG PATCH
     Route: 062
  2. DURAGESIC-100 [Suspect]
     Route: 062
  3. DURAGESIC-100 [Suspect]
     Indication: BACK PAIN
     Route: 062
  4. FENTANYL TRANSDERMAL SYSTEM [Suspect]
     Dosage: 25 + 25
     Route: 062
  5. FENTANYL TRANSDERMAL SYSTEM [Suspect]
     Indication: BACK PAIN
     Dosage: TWO 25UG PATCHES
     Route: 062

REACTIONS (9)
  - ABDOMINAL PAIN [None]
  - AMMONIA INCREASED [None]
  - CONSTIPATION [None]
  - DELIRIUM [None]
  - DIARRHOEA [None]
  - LIVER DISORDER [None]
  - TREATMENT NONCOMPLIANCE [None]
  - VOMITING [None]
  - WITHDRAWAL SYNDROME [None]
